FAERS Safety Report 5095942-0 (Version None)
Quarter: 2006Q3

REPORT INFORMATION
  Report Type: 
  Country: None (occurrence: None)
  Receive Date: 20060830
  Receipt Date: 20060817
  Transmission Date: 20061208
  Serious: Yes (Hospitalization, Other)
  Sender: FDA-Public Use
  Company Number: HQWYE782021AUG06

PATIENT
  Age: 58 Year
  Sex: Male

DRUGS (5)
  1. PROGRAF, CONTROL FOR SIROLIMUS (PROGRAF, CONTROL [Suspect]
     Indication: PROPHYLAXIS AGAINST TRANSPLANT REJECTION
     Dosage: 6 MG 2X PER 1 DAY, ORAL
     Route: 048
     Dates: start: 20050606, end: 20060110
  2. MYCOPHENOLATE MOFETIL [Suspect]
     Indication: PROPHYLAXIS AGAINST TRANSPLANT REJECTION
     Dosage: ORAL
     Route: 048
  3. PREDNISONE TAB [Suspect]
     Indication: PROPHYLAXIS AGAINST TRANSPLANT REJECTION
     Dosage: 5 MG 1X PER 1 DAY, ORAL
     Route: 048
     Dates: end: 20060701
  4. PREDNISONE TAB [Suspect]
     Indication: PROPHYLAXIS AGAINST TRANSPLANT REJECTION
     Dosage: 5 MG 1X PER 1 DAY, ORAL
     Route: 048
     Dates: start: 20060708
  5. ZENAPAX [Suspect]
     Indication: PROPHYLAXIS AGAINST TRANSPLANT REJECTION

REACTIONS (5)
  - CYTOMEGALOVIRUS INFECTION [None]
  - HEPATIC ENZYME INCREASED [None]
  - METASTASES TO LYMPH NODES [None]
  - METASTATIC RENAL CELL CARCINOMA [None]
  - NECROSIS [None]
